FAERS Safety Report 9882384 (Version 3)
Quarter: 2014Q2

REPORT INFORMATION
  Report Type: Spontaneous
  Country: JP (occurrence: JP)
  Receive Date: 20140207
  Receipt Date: 20140605
  Transmission Date: 20141212
  Serious: Yes (Other)
  Sender: FDA-Public Use
  Company Number: JP-GLAXOSMITHKLINE-B0966837A

PATIENT
  Age: 10 Year
  Sex: Male

DRUGS (3)
  1. RELENZA [Suspect]
     Indication: INFLUENZA
     Dosage: 10MG TWICE PER DAY
     Route: 055
     Dates: start: 20140130, end: 20140131
  2. ACETAMINOPHEN [Concomitant]
     Dosage: .33G THREE TIMES PER DAY
     Route: 048
     Dates: start: 20140130, end: 20140203
  3. CEFDINIR [Concomitant]
     Dosage: 100MG THREE TIMES PER DAY
     Route: 048

REACTIONS (7)
  - Altered state of consciousness [Recovered/Resolved]
  - Restlessness [Recovered/Resolved]
  - Abnormal behaviour [Recovered/Resolved]
  - Nightmare [Recovered/Resolved]
  - Memory impairment [Unknown]
  - Dyspnoea [Unknown]
  - Screaming [Unknown]
